FAERS Safety Report 6388323-0 (Version None)
Quarter: 2009Q4

REPORT INFORMATION
  Report Type: 
  Country: None (occurrence: None)
  Receive Date: 20091001
  Receipt Date: 20091001
  Transmission Date: 20100525
  Serious: No
  Sender: FDA-Public Use
  Company Number: None

PATIENT
  Age: 11 Year
  Sex: Female
  Weight: 38.5557 kg

DRUGS (2)
  1. TAMIFLU [Suspect]
     Indication: INFLUENZA
     Dosage: 4 ML 2 X PER DAY PO
     Route: 048
     Dates: start: 20090928, end: 20090929
  2. TAMIFLU [Suspect]
     Dosage: 3/4 TSP 2 X PER DAY PO
     Route: 048

REACTIONS (6)
  - COGNITIVE DISORDER [None]
  - DISORIENTATION [None]
  - HAEMORRHAGE [None]
  - HALLUCINATION [None]
  - PYREXIA [None]
  - SPEECH DISORDER [None]
